FAERS Safety Report 5219863-5 (Version None)
Quarter: 2006Q4

REPORT INFORMATION
  Report Type: 
  Country: None (occurrence: None)
  Receive Date: 20061201
  Receipt Date: 20060717
  Transmission Date: 20070319
  Serious: No
  Sender: FDA-Public Use
  Company Number: 2006PV017733

PATIENT
  Age: 58 Year
  Sex: Male
  Weight: 141.9759 kg

DRUGS (8)
  1. BYETTA [Suspect]
     Indication: DIABETES MELLITUS NON-INSULIN-DEPENDENT
     Dosage: SEE IMAGE
     Route: 058
     Dates: start: 20060603, end: 20060704
  2. BYETTA [Suspect]
     Indication: DIABETES MELLITUS NON-INSULIN-DEPENDENT
     Dosage: SEE IMAGE
     Route: 058
     Dates: start: 20060704
  3. ACTOS /USA/ [Concomitant]
  4. HUMALOG MIX 75/25 [Concomitant]
  5. GLUCOPHAGE [Concomitant]
  6. HUMALOG REGULAR PEN [Concomitant]
  7. HUMALOG MIX 75/25 [Concomitant]
  8. .. [Concomitant]

REACTIONS (3)
  - BLOOD GLUCOSE INCREASED [None]
  - DECREASED APPETITE [None]
  - WEIGHT DECREASED [None]
